FAERS Safety Report 6803866-0 (Version None)
Quarter: 2010Q2

REPORT INFORMATION
  Report Type: 
  Country: None (occurrence: None)
  Receive Date: 20100628
  Receipt Date: 20100625
  Transmission Date: 20101027
  Serious: Yes (Hospitalization)
  Sender: FDA-Public Use
  Company Number: JP-B.I. PHARMACEUTICALS,INC./RIDGEFIELD-2010-BP-06984NB

PATIENT
  Sex: Male

DRUGS (4)
  1. MICOMBI COMBINATION [Suspect]
     Indication: HYPERTENSION
     Dosage: TELMISARTAN 40 MG/HYDROCHLOROTHIAZIDE 12.5 MG
     Route: 048
     Dates: start: 20100319, end: 20100514
  2. CELECTOL [Concomitant]
     Indication: HYPERTENSION
     Dosage: 200 MG
     Route: 048
  3. LIVALO [Concomitant]
     Dosage: 1 MG
     Route: 048
  4. ZYLORIC [Concomitant]
     Dosage: 200 MG
     Route: 048

REACTIONS (2)
  - DIABETIC KETOACIDOSIS [None]
  - NASOPHARYNGITIS [None]
